FAERS Safety Report 9928078 (Version 2)
Quarter: 2014Q1

REPORT INFORMATION
  Report Type: Spontaneous
  Country: CH (occurrence: None)
  Receive Date: 20140224
  Receipt Date: 20140324
  Transmission Date: 20141002
  Serious: Yes (Other)
  Sender: FDA-Public Use
  Company Number: 20140072

PATIENT
  Age: 79 Year
  Sex: Female

DRUGS (1)
  1. VENOFER [Suspect]
     Indication: IRON DEFICIENCY
     Dosage: IRON SUCROSE INJECTION) 20 MG0 ML  NAC1 INTRAVENOUS DRIP
     Route: 041
     Dates: start: 20140122, end: 20140127

REACTIONS (3)
  - Disease recurrence [None]
  - Macular degeneration [None]
  - Visual impairment [None]
